FAERS Safety Report 5975682-3 (Version None)
Quarter: 2008Q4

REPORT INFORMATION
  Report Type: 
  Country: None (occurrence: None)
  Receive Date: 20081202
  Receipt Date: 20081125
  Transmission Date: 20090506
  Serious: Yes (Other)
  Sender: FDA-Public Use
  Company Number: PHEH2008US10607

PATIENT
  Age: 73 Year
  Sex: Female

DRUGS (1)
  1. TASIGNA [Suspect]
     Dosage: UNK
     Dates: start: 20080801

REACTIONS (3)
  - PAIN IN EXTREMITY [None]
  - PERONEAL NERVE PALSY [None]
  - SCIATICA [None]
